FAERS Safety Report 25923460 (Version 1)
Quarter: 2025Q4

REPORT INFORMATION
  Report Type: Report from Study
  Country: US (occurrence: US)
  Receive Date: 20251015
  Receipt Date: 20251015
  Transmission Date: 20260117
  Serious: Yes (Death)
  Sender: RECORDATI
  Company Number: US-RECORDATI RARE DISEASES-2025007196

PATIENT
  Sex: Male
  Weight: 72.109 kg

DRUGS (9)
  1. ISTURISA [Suspect]
     Active Substance: OSILODROSTAT PHOSPHATE
     Indication: Pituitary-dependent Cushing^s syndrome
     Dosage: 3 MILLIGRAM, TWICE DAY
     Route: 048
     Dates: end: 2025
  2. HYDROCHLOROTHIAZIDE\TRIAMTERENE [Concomitant]
     Active Substance: HYDROCHLOROTHIAZIDE\TRIAMTERENE
     Indication: Product used for unknown indication
     Dosage: 37.5-25 MG, DAILY (TABLET 37.5-2)
     Route: 048
     Dates: start: 20240318
  3. METOPROLOL SUCCINATE [Concomitant]
     Active Substance: METOPROLOL SUCCINATE
     Indication: Product used for unknown indication
     Dosage: 25 MG, DAILY (EXTENDED RELEASE, TABLET)
     Route: 048
     Dates: start: 20240318
  4. VITAMIN D [Concomitant]
     Active Substance: VITAMIN D NOS
     Indication: Product used for unknown indication
     Dosage: 50 MICROGRAM, DAILY (CAPSULE)
     Route: 048
     Dates: start: 20240318
  5. MENAQUINONE 6 [Concomitant]
     Active Substance: MENAQUINONE 6
     Indication: Product used for unknown indication
     Dosage: 100 MICROGRAM, QD (TABLET 100 MICROGRAM)
     Route: 048
     Dates: start: 20240318
  6. ROSUVASTATIN CALCIUM [Concomitant]
     Active Substance: ROSUVASTATIN CALCIUM
     Indication: Product used for unknown indication
     Dosage: 40 MILLIGRAM, DAILY (TABLET 40)
     Route: 048
     Dates: start: 20240318
  7. LOSARTAN POTASSIUM [Concomitant]
     Active Substance: LOSARTAN POTASSIUM
     Indication: Product used for unknown indication
     Dosage: 25 MG, DAILY (TABLET 25 M)
     Route: 048
     Dates: start: 20240318
  8. EZETIMIBE [Concomitant]
     Active Substance: EZETIMIBE
     Indication: Product used for unknown indication
     Dosage: 10 MILLIGRAM, QD (TABLET)
     Route: 048
     Dates: start: 20240318
  9. ELIQUIS [Concomitant]
     Active Substance: APIXABAN
     Indication: Product used for unknown indication
     Dosage: 5 MILLIGRAM, QD (TABLET)
     Route: 048
     Dates: start: 20250407

REACTIONS (1)
  - Death [Fatal]

NARRATIVE: CASE EVENT DATE: 20250101
